FAERS Safety Report 10255696 (Version 1)
Quarter: 2014Q2

REPORT INFORMATION
  Report Type: Spontaneous
  Country: AR (occurrence: AR)
  Receive Date: 20140624
  Receipt Date: 20140624
  Transmission Date: 20141212
  Serious: Yes (Death)
  Sender: FDA-Public Use
  Company Number: PHHY2014AR077580

PATIENT
  Age: 54 Year
  Sex: Male

DRUGS (3)
  1. CARBIDOPA,ENTACAPONE,LEVODOPA [Suspect]
     Indication: PARKINSON^S DISEASE
     Dosage: 1 DF, UNK
  2. AMANTADINE [Suspect]
     Indication: PARKINSON^S DISEASE
     Dosage: 300 MG, DAILY
  3. RASAGILINE [Suspect]
     Indication: PARKINSON^S DISEASE
     Dosage: 1 MG, DAILY

REACTIONS (1)
  - Sudden death [Fatal]
